FAERS Safety Report 8270812-5 (Version None)
Quarter: 2012Q2

REPORT INFORMATION
  Report Type: 
  Country: None (occurrence: None)
  Receive Date: 20120410
  Receipt Date: 20120404
  Transmission Date: 20120825
  Serious: Yes (Hospitalization, Other)
  Sender: FDA-Public Use
  Company Number: BR-PFIZER INC-2012086204

PATIENT
  Age: 69 Year
  Sex: Female

DRUGS (3)
  1. ARTROLIVE [Concomitant]
     Indication: OSTEOARTHRITIS
     Dosage: ONE TABLET, ONCE DAILY
     Dates: start: 20110101
  2. VALSARTAN [Concomitant]
     Indication: BLOOD PRESSURE INCREASED
     Dosage: ON ETBALET, ONCE DAILY
     Dates: start: 20070101
  3. LYRICA [Suspect]
     Indication: BACK DISORDER
     Dosage: 150 MG, 1X/DAY
     Route: 048
     Dates: start: 20101124

REACTIONS (2)
  - FALL [None]
  - UPPER LIMB FRACTURE [None]
